FAERS Safety Report 10649057 (Version 2)
Quarter: 2014Q4

REPORT INFORMATION
  Report Type: Spontaneous
  Country: BE (occurrence: BE)
  Receive Date: 20141212
  Receipt Date: 20141222
  Transmission Date: 20150529
  Serious: Yes (Other)
  Sender: FDA-Public Use
  Company Number: BE-NOVOPROD-431105

PATIENT
  Age: 42 Year
  Sex: Male
  Weight: 74 kg

DRUGS (12)
  1. FOLIC ACID. [Concomitant]
     Active Substance: FOLIC ACID
     Dosage: UNK
  2. PROGRAFT [Concomitant]
     Active Substance: TACROLIMUS
     Dosage: 1 IN THE MORNING AND 1 IN THE EVENING BID
  3. VICTOZA [Suspect]
     Active Substance: LIRAGLUTIDE
     Indication: WEIGHT CONTROL
     Dosage: 1.20 MG, QD
     Route: 065
     Dates: start: 20141121, end: 20141129
  4. TAMSULOSINE [Concomitant]
     Active Substance: TAMSULOSIN HYDROCHLORIDE
     Dosage: UNK
  5. IMURAN [Concomitant]
     Active Substance: AZATHIOPRINE
     Dosage: 1 QD
  6. VICTOZA [Suspect]
     Active Substance: LIRAGLUTIDE
     Indication: TYPE 1 DIABETES MELLITUS
     Dosage: 0.6 MG, QD
     Route: 065
     Dates: start: 20141107
  7. ASAFLOW [Concomitant]
     Active Substance: ASPIRIN
     Dosage: 1
  8. PRIMPERAN [Concomitant]
     Active Substance: METOCLOPRAMIDE HYDROCHLORIDE
     Dosage: NORMALLY 1 IN THE EVENING, BUT SINCE 29-NOV-2014 3 IN THE EVENING
  9. VICTOZA [Suspect]
     Active Substance: LIRAGLUTIDE
     Indication: OFF LABEL USE
  10. COLITOFALK [Concomitant]
     Dosage: 2 IN THE MORNING AND 2 IN THE EVENING QID
  11. PANTOZOL [Concomitant]
     Active Substance: PANTOPRAZOLE SODIUM
     Dosage: 1 IN THE MORNING AND 1 IN THE EVENING BID
  12. PREDNISOLONE. [Concomitant]
     Active Substance: PREDNISOLONE
     Dosage: QD

REACTIONS (6)
  - Vomiting [Recovered/Resolved]
  - Gastric disorder [Recovered/Resolved]
  - Blood pressure decreased [Recovered/Resolved]
  - Product use issue [Unknown]
  - Decreased appetite [Recovered/Resolved]
  - Weight decreased [Unknown]

NARRATIVE: CASE EVENT DATE: 20141107
